FAERS Safety Report 9266969 (Version 1)
Quarter: 2013Q2

REPORT INFORMATION
  Report Type: Spontaneous
  Country: US (occurrence: US)
  Receive Date: 20130502
  Receipt Date: 20130502
  Transmission Date: 20140414
  Serious: No
  Sender: FDA-Public Use
  Company Number: US-PFIZER INC-2013136898

PATIENT
  Sex: Male

DRUGS (4)
  1. CHANTIX [Suspect]
     Indication: SMOKING CESSATION THERAPY
     Dosage: UNK
  2. ADVAIR DISKUS [Concomitant]
     Indication: DYSPNOEA
     Dosage: UNK
  3. PROAIR HFA [Concomitant]
     Indication: DYSPNOEA
     Dosage: UNK, EVERY 4 HOURS
  4. ALBUTEROL [Concomitant]
     Indication: DYSPNOEA
     Dosage: UNK, AS NEEDED

REACTIONS (1)
  - Depression [Unknown]
